FAERS Safety Report 11664466 (Version 1)
Quarter: 2015Q4

REPORT INFORMATION
  Report Type: Spontaneous
  Country: DE (occurrence: DE)
  Receive Date: 20151027
  Receipt Date: 20151027
  Transmission Date: 20160304
  Serious: Yes (Hospitalization, Other)
  Sender: FDA-Public Use
  Company Number: DE-JNJFOC-20151014336

PATIENT
  Sex: Male

DRUGS (1)
  1. ZYTIGA [Suspect]
     Active Substance: ABIRATERONE ACETATE
     Indication: PROSTATE CANCER
     Route: 048

REACTIONS (10)
  - Jaundice [Unknown]
  - Bile duct cancer [Unknown]
  - Oedema peripheral [Unknown]
  - Asthenia [Unknown]
  - Transaminases increased [Unknown]
  - Blood pressure increased [Unknown]
  - Sepsis [Unknown]
  - Faeces pale [Unknown]
  - Chromaturia [Unknown]
  - Muscular weakness [Unknown]

NARRATIVE: CASE EVENT DATE: 201508
